FAERS Safety Report 21400105 (Version 1)
Quarter: 2022Q4

REPORT INFORMATION
  Report Type: Spontaneous
  Country: FR (occurrence: FR)
  Receive Date: 20221002
  Receipt Date: 20221002
  Transmission Date: 20230113
  Serious: Yes (Hospitalization)
  Sender: FDA-Public Use
  Company Number: None

PATIENT
  Age: 20 Year
  Sex: Female
  Weight: 48 kg

DRUGS (2)
  1. KETOPROFEN [Suspect]
     Active Substance: KETOPROFEN
     Indication: Pain
     Route: 065
     Dates: start: 202206, end: 20220620
  2. OPDIVO [Suspect]
     Active Substance: NIVOLUMAB
     Indication: Metastatic malignant melanoma
     Dosage: STRENGTH: 10 MG/ML, UNIT DOSE: 480MG, FREQUENCY TIME: 4 WEEKS, DURATION: 28 DAYS
     Route: 065
     Dates: start: 20220307, end: 20220404

REACTIONS (1)
  - Colitis [Recovering/Resolving]

NARRATIVE: CASE EVENT DATE: 20220706
